FAERS Safety Report 7686820-9 (Version None)
Quarter: 2011Q3

REPORT INFORMATION
  Report Type: 
  Country: None (occurrence: None)
  Receive Date: 20110816
  Receipt Date: 20110811
  Transmission Date: 20111222
  Serious: Yes (Other)
  Sender: FDA-Public Use
  Company Number: BR-ROCHE-569990

PATIENT
  Sex: Male
  Weight: 70 kg

DRUGS (3)
  1. CLONAZEPAM [Suspect]
     Route: 048
     Dates: start: 19990101
  2. PHENOBARBITAL TAB [Concomitant]
  3. CLONAZEPAM [Suspect]
     Indication: CONVULSION
     Dosage: (SOMETIMES 1.5 MG, SOMETIMES MORE THAN 1.5 MG)
     Route: 048
     Dates: start: 19890101

REACTIONS (5)
  - ILL-DEFINED DISORDER [None]
  - MEDICATION ERROR [None]
  - JOINT RANGE OF MOTION DECREASED [None]
  - RHINITIS [None]
  - HYPERVENTILATION [None]
